FAERS Safety Report 13495026 (Version 1)
Quarter: 2017Q2

REPORT INFORMATION
  Report Type: Spontaneous
  Country: CN (occurrence: CN)
  Receive Date: 20170428
  Receipt Date: 20170428
  Transmission Date: 20170830
  Serious: Yes (Hospitalization)
  Sender: FDA-Public Use
  Company Number: CN-FRESENIUS KABI-FK201703336

PATIENT
  Age: 18 Year
  Sex: Female

DRUGS (3)
  1. SULBENICILLIN SODIUM [Suspect]
     Active Substance: SULBENICILLIN SODIUM
     Indication: PNEUMONIA
  2. MOXIFLOXACIN (MANUFACTURER UNKNOWN) [Suspect]
     Active Substance: MOXIFLOXACIN
     Indication: PNEUMONIA
     Route: 065
  3. VIDARABINE MONOPHOSPHATE [Suspect]
     Active Substance: VIDARABINE PHOSPHATE
     Indication: PNEUMONIA

REACTIONS (1)
  - Central nervous system lesion [Recovered/Resolved]
